FAERS Safety Report 7383481-3 (Version None)
Quarter: 2011Q1

REPORT INFORMATION
  Report Type: 
  Country: None (occurrence: None)
  Receive Date: 20110330
  Receipt Date: 20110321
  Transmission Date: 20110831
  Serious: Yes (Other)
  Sender: FDA-Public Use
  Company Number: US-ELI_LILLY_AND_COMPANY-US201103007022

PATIENT
  Sex: Female

DRUGS (2)
  1. SYMBYAX [Suspect]
     Dosage: 3/25MG,UNKNOWN
  2. SYMBYAX [Suspect]
     Indication: BIPOLAR DISORDER
     Dosage: 6/25MG, UNKNOWN
     Route: 065
     Dates: start: 20110127

REACTIONS (1)
  - WHITE BLOOD CELL COUNT INCREASED [None]
